FAERS Safety Report 18947368 (Version 1)
Quarter: 2021Q1

REPORT INFORMATION
  Report Type: Spontaneous
  Country: US (occurrence: US)
  Receive Date: 20210226
  Receipt Date: 20210226
  Transmission Date: 20210420
  Serious: No
  Sender: FDA-Public Use
  Company Number: US-BAYER-2021-069900

PATIENT
  Sex: Female

DRUGS (1)
  1. MIRENA [Suspect]
     Active Substance: LEVONORGESTREL
     Indication: POSTMENOPAUSAL HAEMORRHAGE
     Dosage: 20 ?G PER DAY, CONTINUOUSLY
     Dates: start: 20140707

REACTIONS (4)
  - Coital bleeding [None]
  - Device use issue [None]
  - Drug effective for unapproved indication [None]
  - Product use in unapproved indication [None]
